FAERS Safety Report 9943237 (Version 1)
Quarter: 2014Q1

REPORT INFORMATION
  Report Type: Spontaneous
  Country: IT (occurrence: IT)
  Receive Date: 20140303
  Receipt Date: 20140303
  Transmission Date: 20141002
  Serious: Yes (Hospitalization)
  Sender: FDA-Public Use
  Company Number: IT-GLAXOSMITHKLINE-B0973251A

PATIENT
  Age: 67 Year
  Sex: Female

DRUGS (1)
  1. DABRAFENIB [Suspect]
     Indication: METASTATIC MALIGNANT MELANOMA
     Dosage: 300MG PER DAY
     Route: 048
     Dates: start: 20130213, end: 20130619

REACTIONS (2)
  - Peritonitis [Unknown]
  - Appendicitis [Unknown]
